FAERS Safety Report 21054960 (Version 1)
Quarter: 2022Q3

REPORT INFORMATION
  Report Type: Spontaneous
  Country: US (occurrence: US)
  Receive Date: 20220707
  Receipt Date: 20220707
  Transmission Date: 20221027
  Serious: No
  Sender: FDA-Public Use
  Company Number: US-BIOMARINAP-US-2022-144187

PATIENT

DRUGS (2)
  1. KUVAN [Suspect]
     Active Substance: SAPROPTERIN DIHYDROCHLORIDE
     Indication: Phenylketonuria
     Dosage: 100 MILLIGRAM, TID
     Route: 048
  2. PERIFLEX [Concomitant]
     Indication: Product used for unknown indication

REACTIONS (4)
  - Salmonellosis [Unknown]
  - Nasopharyngitis [Unknown]
  - Amino acid level increased [Unknown]
  - Teething [Unknown]

NARRATIVE: CASE EVENT DATE: 20220401
